FAERS Safety Report 10061938 (Version 3)
Quarter: 2014Q2

REPORT INFORMATION
  Report Type: Report from Study
  Country: JP (occurrence: JP)
  Receive Date: 20140407
  Receipt Date: 20140618
  Transmission Date: 20141212
  Serious: Yes (Death)
  Sender: FDA-Public Use
  Company Number: JP-ASTELLAS-2011JP006817

PATIENT
  Age: 77 Year
  Sex: Female
  Weight: 54 kg

DRUGS (35)
  1. TACROLIMUS [Suspect]
     Indication: LUPUS NEPHRITIS
     Route: 048
     Dates: start: 20070622, end: 20070913
  2. TACROLIMUS [Suspect]
     Route: 048
     Dates: start: 20070914, end: 20080207
  3. TACROLIMUS [Suspect]
     Route: 048
     Dates: start: 20080208, end: 20081009
  4. TACROLIMUS [Suspect]
     Route: 048
     Dates: start: 20081010, end: 20081211
  5. TACROLIMUS [Suspect]
     Route: 048
     Dates: start: 20081212, end: 20100826
  6. TACROLIMUS [Suspect]
     Route: 048
     Dates: start: 20100827, end: 20100916
  7. TACROLIMUS [Suspect]
     Route: 048
     Dates: start: 20100917, end: 20110217
  8. TACROLIMUS [Suspect]
     Route: 048
     Dates: start: 20110218, end: 20110526
  9. TACROLIMUS [Suspect]
     Route: 048
     Dates: start: 20110527, end: 20120215
  10. HYPEN [Suspect]
     Indication: PRODUCT USED FOR UNKNOWN INDICATION
     Route: 048
  11. HYPEN [Suspect]
     Route: 048
     Dates: end: 20120215
  12. PREDNISOLONE [Concomitant]
     Indication: LUPUS NEPHRITIS
     Route: 048
     Dates: end: 20071011
  13. PREDNISOLONE [Concomitant]
     Route: 048
     Dates: start: 20071012, end: 20071213
  14. PREDNISOLONE [Concomitant]
     Route: 048
     Dates: start: 20071214, end: 20080626
  15. PREDNISOLONE [Concomitant]
     Route: 048
     Dates: start: 20080627, end: 20081010
  16. PREDNISOLONE [Concomitant]
     Route: 048
     Dates: start: 20081011, end: 20090430
  17. PREDNISOLONE [Concomitant]
     Route: 048
     Dates: start: 20090501, end: 20090828
  18. PREDNISOLONE [Concomitant]
     Route: 048
     Dates: start: 20090829, end: 20091211
  19. PREDNISOLONE [Concomitant]
     Route: 048
     Dates: start: 20091212, end: 20110526
  20. PREDNISOLONE [Concomitant]
     Route: 048
     Dates: start: 20110527, end: 20120215
  21. RHEUMATREX [Concomitant]
     Indication: LUPUS NEPHRITIS
     Route: 048
     Dates: end: 20090219
  22. RHEUMATREX [Concomitant]
     Route: 048
     Dates: start: 20090220, end: 20110414
  23. RHEUMATREX [Concomitant]
     Route: 048
     Dates: start: 20110415, end: 20110512
  24. THYRADIN S [Concomitant]
     Indication: PRODUCT USED FOR UNKNOWN INDICATION
     Route: 048
     Dates: end: 20110728
  25. THYRADIN S [Concomitant]
     Route: 048
     Dates: start: 20110729, end: 20120215
  26. ALLELOCK [Concomitant]
     Indication: PRODUCT USED FOR UNKNOWN INDICATION
     Route: 048
     Dates: end: 20120215
  27. DIOVAN [Concomitant]
     Indication: PRODUCT USED FOR UNKNOWN INDICATION
     Route: 048
     Dates: end: 20120215
  28. TOLBUTAMIDE [Concomitant]
     Indication: PRODUCT USED FOR UNKNOWN INDICATION
     Dosage: 0.5 G, UNKNOWN FREQ.
     Route: 048
     Dates: end: 20081113
  29. AZULFIDINE EN [Concomitant]
     Indication: PRODUCT USED FOR UNKNOWN INDICATION
     Route: 048
     Dates: end: 20120215
  30. NORVASC [Concomitant]
     Indication: PRODUCT USED FOR UNKNOWN INDICATION
     Route: 048
     Dates: end: 20090110
  31. NORVASC [Concomitant]
     Route: 048
     Dates: start: 20110902, end: 20110913
  32. NORVASC [Concomitant]
     Route: 048
     Dates: start: 20110914, end: 20120215
  33. AMARYL [Concomitant]
     Indication: DIABETES MELLITUS
     Route: 048
     Dates: start: 20081114, end: 20100624
  34. GLIMICRON [Concomitant]
     Indication: DIABETES MELLITUS
     Route: 048
     Dates: start: 20100625, end: 20120215
  35. FERROMIA                           /00023516/ [Concomitant]
     Indication: IRON DEFICIENCY ANAEMIA
     Route: 048
     Dates: start: 20090116, end: 20090219

REACTIONS (3)
  - Iron deficiency anaemia [Recovered/Resolved]
  - Death [Fatal]
  - Renal disorder [Recovered/Resolved]
